FAERS Safety Report 6984164 (Version 4)
Quarter: 2014Q1

REPORT INFORMATION
  Report Type: Spontaneous
  Country: US (occurrence: US)
  Receive Date: 20090501
  Receipt Date: 20140318
  Transmission Date: 20141002
  Serious: Yes (Hospitalization, Other)
  Sender: FDA-Public Use
  Company Number: US-ALEXION-A200700124

PATIENT
  Sex: 0

DRUGS (17)
  1. SOLIRIS [Suspect]
     Indication: PAROXYSMAL NOCTURNAL HAEMOGLOBINURIA
     Dosage: 600 MG, SINGLE (INFUSION #1)
     Route: 042
     Dates: start: 20070503, end: 20070503
  2. SOLIRIS [Suspect]
     Dosage: INFUSIONS 2 THROUGH 14 (UNKNOWN DOSES)
     Route: 042
     Dates: start: 2007, end: 2007
  3. SOLIRIS [Suspect]
     Dosage: 900 MG, SINGLE (INFUSION #15)
     Route: 042
     Dates: start: 20071018, end: 20071018
  4. SOLIRIS [Suspect]
     Dosage: UNK
     Route: 042
  5. COUMADIN [Concomitant]
     Dosage: 1.5 MG, 1 DAY PER WEEK
     Route: 048
  6. COUMADIN [Concomitant]
     Dosage: 2.5 MG, 6 DAYS PER WEEK
     Route: 048
  7. SINGULAIR /01362601/ [Concomitant]
  8. ALBUTEROL /00139501/ [Concomitant]
  9. TOPROL [Concomitant]
     Dosage: 25 MG, QD
     Route: 048
  10. FOLIC ACID [Concomitant]
     Indication: PAROXYSMAL NOCTURNAL HAEMOGLOBINURIA
     Dosage: UNK, QD
     Route: 048
  11. OXYGEN [Concomitant]
     Dosage: 2 L, HS
     Route: 045
  12. DIATEX [Concomitant]
     Dosage: .25 MG, QD
     Route: 048
  13. LASIX [Concomitant]
     Indication: WEIGHT INCREASED
     Dosage: 40 MG, QD
  14. LASIX [Concomitant]
     Indication: DYSPNOEA
  15. KCL [Concomitant]
     Indication: WEIGHT INCREASED
     Dosage: 40 MEQ
  16. KCL [Concomitant]
     Indication: DYSPNOEA
  17. LEVAQUIN [Concomitant]

REACTIONS (11)
  - Hepatic failure [Not Recovered/Not Resolved]
  - Renal failure [Unknown]
  - Cardiac pacemaker insertion [Unknown]
  - Heart valve replacement [Recovered/Resolved]
  - Transfusion [Unknown]
  - Sepsis [Unknown]
  - Haemoglobinuria [Unknown]
  - Fatigue [Unknown]
  - Abdominal pain [Unknown]
  - Back pain [Unknown]
  - Dyspnoea [Recovering/Resolving]
